FAERS Safety Report 5663141-7 (Version None)
Quarter: 2008Q1

REPORT INFORMATION
  Report Type: 
  Country: None (occurrence: None)
  Receive Date: 20080313
  Receipt Date: 20080312
  Transmission Date: 20080703
  Serious: Yes (Other)
  Sender: FDA-Public Use
  Company Number: B0511936A

PATIENT
  Age: 64 Year
  Sex: Female
  Weight: 87.4 kg

DRUGS (3)
  1. CIMETIDINE [Suspect]
     Indication: DUODENAL ULCER
     Dosage: 800MG PER DAY
     Route: 048
     Dates: end: 20080222
  2. SORAFENIB [Suspect]
     Indication: METASTATIC RENAL CELL CARCINOMA
     Dosage: 400MG PER DAY
     Route: 048
     Dates: start: 20071219, end: 20080222
  3. CO-CODAMOL [Concomitant]
     Indication: PAIN
     Route: 048

REACTIONS (1)
  - SKIN REACTION [None]
